FAERS Safety Report 12585324 (Version 1)
Quarter: 2016Q3

REPORT INFORMATION
  Report Type: Spontaneous
  Country: US (occurrence: US)
  Receive Date: 20160724
  Receipt Date: 20160724
  Transmission Date: 20161109
  Serious: Yes (Other)
  Sender: FDA-Public Use
  Company Number: US-BAUSCH-2013P1002779

PATIENT
  Age: 19 Month
  Sex: Female

DRUGS (7)
  1. OXYMETAZOLINE NASAL SPRAY 0.05% [Suspect]
     Active Substance: OXYMETAZOLINE
     Indication: PRODUCT USED FOR UNKNOWN INDICATION
     Dosage: TWO SPRAYS IN RIGHT NOSTRIL
     Route: 045
  2. SALBUTAMOL [Suspect]
     Active Substance: ALBUTEROL
     Indication: PROPHYLAXIS
  3. HEPARIN [Concomitant]
     Active Substance: HEPARIN SODIUM
     Indication: EMBOLISM
     Route: 042
  4. DIPHENHYDRAMINE. [Suspect]
     Active Substance: DIPHENHYDRAMINE
     Indication: IODINE ALLERGY
     Route: 042
  5. PHENYLEPHRINE-CONTAINING MYDRIATICS [Suspect]
     Active Substance: PHENYLEPHRINE HYDROCHLORIDE
     Indication: PROPHYLAXIS
     Dosage: ONE DROP IN LEFT EYE
     Route: 047
  6. HYDROCORTISONE. [Concomitant]
     Active Substance: HYDROCORTISONE
     Indication: IODINE ALLERGY
     Route: 042
  7. MELPHALAN [Concomitant]
     Active Substance: MELPHALAN
     Indication: RETINOBLASTOMA
     Route: 013

REACTIONS (2)
  - Hypertension [Recovered/Resolved]
  - Cerebral vasoconstriction [Recovered/Resolved]
